FAERS Safety Report 16372006 (Version 1)
Quarter: 2019Q3

REPORT INFORMATION
  Report Type: Spontaneous
  Country: US (occurrence: US)
  Receive Date: 20190529
  Receipt Date: 20190529
  Transmission Date: 20191004
  Serious: No
  Sender: FDA-Public Use
  Company Number: None

PATIENT
  Age: 62 Year
  Sex: Female
  Weight: 74 kg

DRUGS (2)
  1. EMEND (FOSAPREPITANT DIMEGLUMINE) [Suspect]
     Active Substance: FOSAPREPITANT DIMEGLUMINE
     Indication: PREMEDICATION
     Dosage: ?          OTHER FREQUENCY:WEEKLY;?
     Route: 041
     Dates: start: 20190423, end: 20190514
  2. FAMOTIDINE. [Suspect]
     Active Substance: FAMOTIDINE
     Indication: PREMEDICATION
     Dosage: ?          OTHER FREQUENCY:WEEKLY;?
     Route: 040
     Dates: start: 20190423, end: 20190514

REACTIONS (5)
  - Infusion site discomfort [None]
  - Dizziness [None]
  - Dyspnoea [None]
  - Infusion site pain [None]
  - Infusion site swelling [None]

NARRATIVE: CASE EVENT DATE: 20190514
